FAERS Safety Report 6315907-8 (Version None)
Quarter: 2009Q3

REPORT INFORMATION
  Report Type: 
  Country: None (occurrence: None)
  Receive Date: 20090820
  Receipt Date: 20080229
  Transmission Date: 20100115
  Serious: Yes (Hospitalization, Other)
  Sender: FDA-Public Use
  Company Number: US-ASTRAZENECA-2007UW23386

PATIENT
  Age: 491 Month
  Sex: Male
  Weight: 81.6 kg

DRUGS (25)
  1. SEROQUEL [Suspect]
     Indication: BIPOLAR DISORDER
     Dosage: 600-1200 MG, FREQUENCY: UNKNOWN
     Route: 048
     Dates: start: 20020101
  2. SEROQUEL [Suspect]
     Indication: SLEEP DISORDER
     Dosage: 600-1200 MG, FREQUENCY: UNKNOWN
     Route: 048
     Dates: start: 20020101
  3. SEROQUEL [Suspect]
     Indication: MOOD SWINGS
     Dosage: 600-1200 MG, FREQUENCY: UNKNOWN
     Route: 048
     Dates: start: 20020101
  4. SEROQUEL [Suspect]
     Dosage: STRENGTH: 100 MG - 600 MG
     Route: 048
     Dates: start: 20030814
  5. SEROQUEL [Suspect]
     Dosage: STRENGTH: 100 MG - 600 MG
     Route: 048
     Dates: start: 20030814
  6. SEROQUEL [Suspect]
     Dosage: STRENGTH: 100 MG - 600 MG
     Route: 048
     Dates: start: 20030814
  7. ZYPREXA [Concomitant]
     Indication: MOOD SWINGS
     Dates: start: 20020301
  8. ZYPREXA [Concomitant]
     Indication: BIPOLAR DISORDER
     Dates: start: 20020301
  9. ZYPREXA [Concomitant]
     Route: 048
     Dates: start: 20030425
  10. ZYPREXA [Concomitant]
     Route: 048
     Dates: start: 20030425
  11. RISPERDAL [Concomitant]
     Dates: start: 20020301, end: 20020401
  12. NEURONTIN [Concomitant]
  13. NEURONTIN [Concomitant]
     Route: 048
     Dates: start: 20030331
  14. NEURONTIN [Concomitant]
     Route: 048
     Dates: start: 20060313
  15. VISTARIL [Concomitant]
     Dosage: DOSE 25MG, EVERY 3-4 HOURS AS REQUIRED
     Route: 030
     Dates: start: 20000818
  16. DESYREL [Concomitant]
     Indication: DEPRESSION
     Route: 048
     Dates: start: 20060311
  17. DESYREL [Concomitant]
     Indication: INSOMNIA
     Route: 048
     Dates: start: 20060311
  18. RESTORIL [Concomitant]
     Indication: INSOMNIA
     Dosage: DOSE - 15 MG AS REQUIRED AT NIGHT
     Route: 048
     Dates: start: 20060208
  19. TESTOSTERONE [Concomitant]
     Dosage: TWICW A MONTH
     Dates: start: 20061031
  20. ACTOS [Concomitant]
     Dates: start: 20030806
  21. DIABETA [Concomitant]
     Dates: start: 20061031
  22. PRANDIN [Concomitant]
     Route: 048
     Dates: start: 20030715
  23. TEGRETOL [Concomitant]
     Dates: start: 20030425
  24. PROTONIX [Concomitant]
     Route: 048
     Dates: start: 20060314
  25. CARAFATE [Concomitant]
     Route: 048
     Dates: start: 20060313

REACTIONS (13)
  - ABSCESS [None]
  - ALCOHOLIC PANCREATITIS [None]
  - DIABETES MELLITUS [None]
  - DIABETES MELLITUS INADEQUATE CONTROL [None]
  - DIABETIC BLINDNESS [None]
  - DIABETIC KETOACIDOSIS [None]
  - DIABETIC RETINOPATHY [None]
  - FURUNCLE [None]
  - GASTROINTESTINAL DISORDER [None]
  - NEUROPATHY PERIPHERAL [None]
  - PANCREATITIS [None]
  - SECONDARY HYPOGONADISM [None]
  - TYPE 1 DIABETES MELLITUS [None]
